FAERS Safety Report 8358149-7 (Version None)
Quarter: 2012Q2

REPORT INFORMATION
  Report Type: 
  Country: None (occurrence: None)
  Receive Date: 20120514
  Receipt Date: 20120504
  Transmission Date: 20120825
  Serious: Yes (Death, Hospitalization)
  Sender: FDA-Public Use
  Company Number: US-GLAXOSMITHKLINE-A0869353A

PATIENT
  Age: 48 Year
  Sex: Male
  Weight: 159.1 kg

DRUGS (7)
  1. METFORMIN HCL [Concomitant]
  2. JANUVIA [Concomitant]
  3. HYDROCHLOROTHIAZIDE [Concomitant]
  4. LYRICA [Concomitant]
  5. AVANDAMET [Suspect]
     Indication: DIABETES MELLITUS
     Route: 048
     Dates: start: 20050927, end: 20060316
  6. AVANDIA [Suspect]
     Indication: DIABETES MELLITUS
     Dosage: 4MG TWICE PER DAY
     Route: 048
     Dates: start: 20060316, end: 20090201
  7. LISINOPRIL [Concomitant]

REACTIONS (3)
  - CEREBROVASCULAR ACCIDENT [None]
  - DEATH [None]
  - MYOCARDIAL INFARCTION [None]
